FAERS Safety Report 8547269-X (Version None)
Quarter: 2012Q3

REPORT INFORMATION
  Report Type: 
  Country: None (occurrence: None)
  Receive Date: 20120727
  Receipt Date: 20120719
  Transmission Date: 20120928
  Serious: Yes (Death, Hospitalization)
  Sender: FDA-Public Use
  Company Number: VN-BAXTER-2012BAX012021

PATIENT
  Age: 71 Year
  Sex: Female

DRUGS (2)
  1. DIANEAL [Suspect]
     Dosage: 3
     Route: 033
     Dates: start: 20100422
  2. DIANEAL [Suspect]
     Dosage: 1
     Route: 033

REACTIONS (1)
  - PNEUMONIA [None]
